FAERS Safety Report 6717420-2 (Version None)
Quarter: 2010Q2

REPORT INFORMATION
  Report Type: 
  Country: None (occurrence: None)
  Receive Date: 20100510
  Receipt Date: 20100505
  Transmission Date: 20101027
  Serious: Yes (Other)
  Sender: FDA-Public Use
  Company Number: GB-ROCHE-669137

PATIENT
  Sex: Male

DRUGS (3)
  1. TAMIFLU [Suspect]
     Dosage: ROUTE, FREQUENCY UNSPECIFIED.
     Route: 065
  2. NEUPOGEN [Concomitant]
  3. GENTAMICIN [Concomitant]

REACTIONS (3)
  - ARRHYTHMIA [None]
  - CONFUSIONAL STATE [None]
  - DELIRIUM [None]
